FAERS Safety Report 8425457-0 (Version None)
Quarter: 2012Q2

REPORT INFORMATION
  Report Type: 
  Country: None (occurrence: None)
  Receive Date: 20120604
  Receipt Date: 20120518
  Transmission Date: 20120825
  Serious: Yes (Hospitalization)
  Sender: FDA-Public Use
  Company Number: 2011AP002462

PATIENT
  Age: 56 Year
  Sex: Female

DRUGS (4)
  1. ARIPIPRAZOLE [Suspect]
     Indication: PSYCHOTIC DISORDER
     Dosage: 30 MG;QD
  2. OLANZAPINE [Suspect]
     Indication: PSYCHOTIC DISORDER
  3. VALPROIC ACID [Suspect]
     Indication: PSYCHOTIC DISORDER
  4. FLUPENTIXOL (FLUPENTIXOL) [Suspect]
     Indication: PSYCHOTIC DISORDER

REACTIONS (4)
  - WEIGHT INCREASED [None]
  - HYPONATRAEMIA [None]
  - MENTAL DISORDER [None]
  - MENTAL STATUS CHANGES [None]
